FAERS Safety Report 9237943 (Version 1)
Quarter: 2013Q1

REPORT INFORMATION
  Report Type: Spontaneous
  Country: US (occurrence: None)
  Receive Date: 20121106
  Receipt Date: 20121106
  Transmission Date: 20140127
  Serious: No
  Sender: FDA-Public Use
  Company Number: 1000039059

PATIENT
  Age: 85 Year
  Sex: Female

DRUGS (1)
  1. DALIRESP [Suspect]

REACTIONS (3)
  - Decreased appetite [None]
  - Weight decreased [None]
  - Retching [None]
